FAERS Safety Report 17528009 (Version 1)
Quarter: 2020Q1

REPORT INFORMATION
  Report Type: Report from Study
  Country: US (occurrence: US)
  Receive Date: 20200311
  Receipt Date: 20200311
  Transmission Date: 20200409
  Serious: Yes (Hospitalization)
  Sender: FDA-Public Use
  Company Number: PHHY2018US002915

PATIENT
  Age: 71 Year
  Sex: Female
  Weight: 51.7 kg

DRUGS (2)
  1. LAMPRENE [Suspect]
     Active Substance: CLOFAZIMINE
     Indication: MYCOBACTERIAL INFECTION
     Dosage: 100 MG, QD
     Route: 048
     Dates: end: 20190530
  2. CIPRO [Suspect]
     Active Substance: CIPROFLOXACIN HYDROCHLORIDE
     Indication: PRODUCT USED FOR UNKNOWN INDICATION
     Dosage: UNK
     Route: 065
     Dates: end: 20190219

REACTIONS (12)
  - Tenderness [Recovered/Resolved]
  - Hypoxia [Recovering/Resolving]
  - Respiratory failure [Unknown]
  - Skin discolouration [Not Recovered/Not Resolved]
  - Rhinorrhoea [Recovered/Resolved]
  - Bronchiectasis [Unknown]
  - Visual acuity reduced [Not Recovered/Not Resolved]
  - Tinnitus [Not Recovered/Not Resolved]
  - Upper-airway cough syndrome [Recovered/Resolved]
  - Paranasal sinus discomfort [Recovered/Resolved]
  - Tendon rupture [Recovered/Resolved]
  - Tendonitis [Recovered/Resolved]

NARRATIVE: CASE EVENT DATE: 20180104
